FAERS Safety Report 15290364 (Version 1)
Quarter: 2018Q3

REPORT INFORMATION
  Report Type: Spontaneous
  Country: LB (occurrence: LB)
  Receive Date: 20180817
  Receipt Date: 20180817
  Transmission Date: 20181010
  Serious: Yes (Other)
  Sender: FDA-Public Use
  Company Number: LB-INGENUS PHARMACEUTICALS NJ, LLC-ING201808-000869

PATIENT
  Age: 53 Year
  Sex: Female

DRUGS (2)
  1. CARISOPRODOL, ASPIRIN AND CODEINE PHOSPHATE [Suspect]
     Active Substance: ASPIRIN\CARISOPRODOL\CODEINE PHOSPHATE
  2. CARISOPRODOL, ASPIRIN AND CODEINE PHOSPHATE [Suspect]
     Active Substance: ASPIRIN\CARISOPRODOL\CODEINE PHOSPHATE

REACTIONS (5)
  - Dizziness [Recovering/Resolving]
  - Autonomic nervous system imbalance [Recovering/Resolving]
  - Myopathy [Recovering/Resolving]
  - Drug abuse [Recovering/Resolving]
  - Peripheral sensory neuropathy [Recovering/Resolving]
